FAERS Safety Report 25332414 (Version 9)
Quarter: 2025Q4

REPORT INFORMATION
  Report Type: Report from Study
  Country: US (occurrence: US)
  Receive Date: 20250519
  Receipt Date: 20251212
  Transmission Date: 20260119
  Serious: No
  Sender: PFIZER
  Company Number: US-PFIZER INC-202500097882

PATIENT
  Age: 10 Year
  Sex: Female

DRUGS (1)
  1. GENOTROPIN [Suspect]
     Active Substance: SOMATROPIN
     Dosage: 0.8 MG, DAILY (7 DAYS/WEEK)

REACTIONS (5)
  - Device use error [Unknown]
  - Device issue [Unknown]
  - Device material issue [Unknown]
  - Device leakage [Unknown]
  - Device information output issue [Unknown]
